FAERS Safety Report 16130470 (Version 1)
Quarter: 2019Q1

REPORT INFORMATION
  Report Type: Spontaneous
  Country: US (occurrence: US)
  Receive Date: 20190328
  Receipt Date: 20190328
  Transmission Date: 20190418
  Serious: No
  Sender: FDA-Public Use
  Company Number: US-GILEAD-2019-0399091

PATIENT
  Age: 65 Year
  Sex: Female

DRUGS (6)
  1. CALCIUM [Concomitant]
     Active Substance: CALCIUM
  2. SIMVASTATIN. [Concomitant]
     Active Substance: SIMVASTATIN
  3. METFORMIN HCL [Concomitant]
     Active Substance: METFORMIN HYDROCHLORIDE
  4. TENOFOVIR ALAFENAMIDE [Suspect]
     Active Substance: TENOFOVIR ALAFENAMIDE
     Indication: CHRONIC HEPATITIS B
     Dosage: 25 MG
     Route: 048
     Dates: start: 201703
  5. VITAMIN D [Concomitant]
     Active Substance: CHOLECALCIFEROL
  6. VALSARTAN. [Concomitant]
     Active Substance: VALSARTAN

REACTIONS (1)
  - Product dose omission [Unknown]
